FAERS Safety Report 4572054-3 (Version None)
Quarter: 2005Q1

REPORT INFORMATION
  Report Type: 
  Country: None (occurrence: None)
  Receive Date: 20050202
  Receipt Date: 20050119
  Transmission Date: 20050727
  Serious: Yes (Hospitalization, Other)
  Sender: FDA-Public Use
  Company Number: USA050188726

PATIENT
  Age: 75 Year
  Sex: Male

DRUGS (4)
  1. ALIMTA [Suspect]
     Indication: LUNG NEOPLASM MALIGNANT
     Dates: start: 20041111
  2. FOLIC ACID [Concomitant]
  3. VITAMIN B-12 [Concomitant]
  4. ANTI-NAUSEA MEDICATIONS [Concomitant]

REACTIONS (10)
  - ANOREXIA [None]
  - ANURIA [None]
  - ASTHENIA [None]
  - BLOOD TEST ABNORMAL [None]
  - CONSTIPATION [None]
  - DYSGEUSIA [None]
  - EATING DISORDER [None]
  - INTESTINAL OBSTRUCTION [None]
  - SKIN DISCOLOURATION [None]
  - WEIGHT DECREASED [None]
